FAERS Safety Report 5000393-0 (Version None)
Quarter: 2006Q2

REPORT INFORMATION
  Report Type: 
  Country: None (occurrence: None)
  Receive Date: 20060511
  Receipt Date: 20051103
  Transmission Date: 20061013
  Serious: Yes (Disabling, Other)
  Sender: FDA-Public Use
  Company Number: US-MERCK-0511USA00807

PATIENT
  Age: 56 Year
  Sex: Female
  Weight: 91 kg

DRUGS (14)
  1. SYNTHROID [Concomitant]
     Indication: HYPOTHYROIDISM
     Route: 065
  2. ASPIRIN [Concomitant]
     Route: 048
     Dates: start: 20010101
  3. ULTRAM [Concomitant]
     Indication: OSTEOARTHRITIS
     Route: 065
     Dates: start: 20000201
  4. VIOXX [Suspect]
     Indication: OSTEOARTHRITIS
     Route: 048
     Dates: start: 20000126, end: 20010101
  5. LOTREL [Concomitant]
     Indication: HYPERTENSION
     Route: 065
     Dates: start: 20000101
  6. K-DUR 10 [Concomitant]
     Route: 065
     Dates: start: 20000101
  7. ZAROXOLYN [Concomitant]
     Indication: FLUID OVERLOAD
     Route: 065
     Dates: start: 20000101
  8. ANASPAZ [Concomitant]
     Route: 065
  9. ESTRADIOL [Concomitant]
     Indication: HORMONE REPLACEMENT THERAPY
     Route: 065
     Dates: start: 20010101
  10. LOTRISONE [Concomitant]
     Route: 065
  11. ALLEGRA [Concomitant]
     Route: 065
  12. LOMOTIL [Concomitant]
     Route: 065
  13. MECLIZINE HYDROCHLORIDE [Concomitant]
     Route: 065
  14. DROPERIDOL [Concomitant]
     Route: 065

REACTIONS (4)
  - ARTHROPATHY [None]
  - CEREBROVASCULAR ACCIDENT [None]
  - HYPERTENSION [None]
  - OEDEMA PERIPHERAL [None]
